FAERS Safety Report 20610777 (Version 1)
Quarter: 2022Q1

REPORT INFORMATION
  Report Type: Spontaneous
  Country: NL (occurrence: NL)
  Receive Date: 20220318
  Receipt Date: 20220318
  Transmission Date: 20220423
  Serious: Yes (Hospitalization, Other)
  Sender: FDA-Public Use
  Company Number: None

PATIENT
  Age: 51 Year
  Sex: Female
  Weight: 82 kg

DRUGS (4)
  1. JARDIANCE [Suspect]
     Active Substance: EMPAGLIFLOZIN
     Indication: Type 2 diabetes mellitus
     Dosage: DAG 1 STUK?DAY 1 PIECE
     Dates: start: 2015, end: 20210603
  2. INSULIN NOS [Concomitant]
     Active Substance: INSULIN NOS
     Indication: Product used for unknown indication
     Dosage: POMP, 175 MG, 400 MG
  3. BEZAFIBRAAT TABLET MGA 400MG / BEZALIP RETARD TABLET MGA 400MG [Concomitant]
     Indication: Product used for unknown indication
     Dosage: POMP/PUMP, 175 MG, 400 MG
  4. LEVOTHYROXINE TABLET  25UG (ZUUR) / THYRAX DUOTAB TABLET 0,025MG [Concomitant]
     Indication: Product used for unknown indication
     Dosage: POMP, 175 MG, 400 MG

REACTIONS (1)
  - Euglycaemic diabetic ketoacidosis [Recovered/Resolved]

NARRATIVE: CASE EVENT DATE: 20200604
